FAERS Safety Report 9241705 (Version 1)
Quarter: 2013Q2

REPORT INFORMATION
  Report Type: Spontaneous
  Country: IE (occurrence: IE)
  Receive Date: 20130419
  Receipt Date: 20130419
  Transmission Date: 20140414
  Serious: Yes (Other)
  Sender: FDA-Public Use
  Company Number: IE-JNJFOC-20130408084

PATIENT
  Sex: Male

DRUGS (5)
  1. SIMPONI [Suspect]
     Indication: RHEUMATIC DISORDER
     Route: 058
     Dates: start: 20120509
  2. METHOTREXATE [Concomitant]
     Route: 065
  3. FOLIC ACID [Concomitant]
     Route: 065
  4. TYLEX [Concomitant]
     Route: 065
  5. ELTROXIN [Concomitant]
     Route: 065

REACTIONS (1)
  - Osteoarthritis [Unknown]
